FAERS Safety Report 24121198 (Version 2)
Quarter: 2024Q3

REPORT INFORMATION
  Report Type: Spontaneous
  Country: NZ (occurrence: NZ)
  Receive Date: 20240722
  Receipt Date: 20240731
  Transmission Date: 20241017
  Serious: Yes (Hospitalization, Other)
  Sender: MYLAN
  Company Number: NZ-MYLANLABS-2024M1067453

PATIENT
  Age: 71 Year
  Sex: Female

DRUGS (12)
  1. CLOZARIL [Suspect]
     Active Substance: CLOZAPINE
     Indication: Parkinson^s disease psychosis
     Dosage: 37.5 MILLIGRAM, PM (NIGHT)
     Route: 048
     Dates: start: 20240627, end: 20240717
  2. CLOZARIL [Suspect]
     Active Substance: CLOZAPINE
     Indication: Schizophrenia
  3. QUETIAPINE [Concomitant]
     Active Substance: QUETIAPINE
     Dosage: 100 MILLIGRAM (PER DAY IN DIVIDED DOSES, VARIABLE DOSING AROUND THIS TIME)
     Route: 065
  4. LORAZEPAM [Concomitant]
     Active Substance: LORAZEPAM
     Dosage: 1.5 MILLIGRAM (PER DAY IN DIVIDED DOSES, VARIABLE DOSING AROUND THIS TIME)
     Route: 065
  5. SINEMET [Concomitant]
     Active Substance: CARBIDOPA\LEVODOPA
     Dosage: 700 MILLIGRAM (PER DAY IN DIVIDED DOSES)
     Route: 065
  6. VENLAFAXINE [Concomitant]
     Active Substance: VENLAFAXINE HYDROCHLORIDE
     Dosage: 225 MILLIGRAM, AM (MORNING)
     Route: 065
  7. CLONAZEPAM [Concomitant]
     Active Substance: CLONAZEPAM
     Dosage: 0.25 MILLIGRAM, PM (NIGHT)
     Route: 065
  8. RIVASTIGMINE [Concomitant]
     Active Substance: RIVASTIGMINE
     Dosage: 9.5 MILLIGRAM, QD (DAILY)
     Route: 065
  9. DOCUSATE SODIUM\SENNOSIDES A AND B [Concomitant]
     Active Substance: DOCUSATE SODIUM\SENNOSIDES A AND B
     Dosage: UNK
     Route: 065
  10. ATORVASTATIN [Concomitant]
     Active Substance: ATORVASTATIN
     Dosage: 20 MILLIGRAM, QD (DAILY)
     Route: 065
  11. CHOLECALCIFEROL [Concomitant]
     Active Substance: CHOLECALCIFEROL
     Dosage: UNK
     Route: 065
  12. ACETAMINOPHEN [Concomitant]
     Active Substance: ACETAMINOPHEN
     Dosage: UNK
     Route: 065

REACTIONS (10)
  - Myocarditis [Recovering/Resolving]
  - Haemoglobin decreased [Recovered/Resolved]
  - Delirium [Unknown]
  - Rebound psychosis [Unknown]
  - Lymphocyte count decreased [Recovering/Resolving]
  - Therapy cessation [Unknown]
  - Troponin increased [Unknown]
  - C-reactive protein increased [Unknown]
  - Blood creatine phosphokinase increased [Unknown]
  - Brain natriuretic peptide increased [Unknown]

NARRATIVE: CASE EVENT DATE: 20240716
